FAERS Safety Report 19069836 (Version 2)
Quarter: 2021Q2

REPORT INFORMATION
  Report Type: Spontaneous
  Country: US (occurrence: US)
  Receive Date: 20210329
  Receipt Date: 20210408
  Transmission Date: 20210717
  Serious: Yes (Other)
  Sender: FDA-Public Use
  Company Number: US-PFIZER INC-2021323068

PATIENT
  Age: 70 Year
  Sex: Female
  Weight: 77 kg

DRUGS (1)
  1. ALPRAZOLAM. [Suspect]
     Active Substance: ALPRAZOLAM
     Indication: PANIC ATTACK
     Dosage: 1 MG, 2X/DAY
     Route: 048

REACTIONS (10)
  - Arrhythmia [Unknown]
  - Feeding disorder [Unknown]
  - Hypersensitivity [Unknown]
  - Eye irritation [Unknown]
  - Visual impairment [Unknown]
  - Gait disturbance [Unknown]
  - Erythema [Unknown]
  - Dizziness [Unknown]
  - Urticaria [Recovered/Resolved]
  - Limb discomfort [Unknown]

NARRATIVE: CASE EVENT DATE: 20210318
